FAERS Safety Report 8304750-6 (Version None)
Quarter: 2012Q2

REPORT INFORMATION
  Report Type: 
  Country: None (occurrence: None)
  Receive Date: 20120423
  Receipt Date: 20110713
  Transmission Date: 20120825
  Serious: Yes (Other)
  Sender: FDA-Public Use
  Company Number: US-BAYER-2011-043536

PATIENT
  Age: 40 Year
  Sex: Female

DRUGS (7)
  1. BACLOFEN [Concomitant]
     Dosage: 10 MG, BID
  2. ZOLOFT [Concomitant]
     Dosage: 200 MG, QD
  3. WELLBUTRIN [Concomitant]
     Dosage: 75 MG, QD
  4. BETAFERON [Suspect]
  5. XANAX [Concomitant]
     Dosage: UNK UNK, PRN QD
  6. BETAFERON [Suspect]
     Indication: RELAPSING-REMITTING MULTIPLE SCLEROSIS
     Dosage: 8 MIU, QOD
     Route: 058
     Dates: start: 20110326
  7. SOMA [Concomitant]
     Dosage: 60 MG, QD PRN

REACTIONS (14)
  - HEADACHE [None]
  - INJECTION SITE ERYTHEMA [None]
  - RECTAL HAEMORRHAGE [None]
  - CHILLS [None]
  - ABDOMINAL PAIN [None]
  - URINARY TRACT INFECTION [None]
  - CONTUSION [None]
  - FATIGUE [None]
  - MALAISE [None]
  - ABDOMINAL DISTENSION [None]
  - DIARRHOEA [None]
  - NIGHT SWEATS [None]
  - HAEMATOCHEZIA [None]
  - INJECTION SITE HAEMATOMA [None]
